FAERS Safety Report 4995056-1 (Version None)
Quarter: 2006Q2

REPORT INFORMATION
  Report Type: 
  Country: None (occurrence: None)
  Receive Date: 20060503
  Receipt Date: 20060421
  Transmission Date: 20061013
  Serious: Yes (Other)
  Sender: FDA-Public Use
  Company Number: 145470USA

PATIENT
  Age: 46 Year
  Sex: Male

DRUGS (9)
  1. COPAXONE [Suspect]
     Indication: MULTIPLE SCLEROSIS
     Dosage: 20 MILLIGRAM DAILY, SUBCUTANEOUS
     Route: 058
  2. ACIPHEX [Concomitant]
  3. ARICEPT [Concomitant]
  4. ZONEGRAN [Concomitant]
  5. CELEXA [Concomitant]
  6. KLONOPIN [Concomitant]
  7. TERAZOSIN HCL [Concomitant]
  8. BACLOFEN [Concomitant]
  9. CRYSTALLINE VIT B12 INJ [Concomitant]

REACTIONS (1)
  - SKIN NECROSIS [None]
